FAERS Safety Report 5496420-7 (Version None)
Quarter: 2007Q3

REPORT INFORMATION
  Report Type: 
  Country: None (occurrence: None)
  Receive Date: 20070924
  Receipt Date: 20070924
  Transmission Date: 20080115
  Serious: Yes (Life-Threatening)
  Sender: FDA-Public Use
  Company Number: None

PATIENT
  Age: 30 Year
  Sex: Female
  Weight: 76.2043 kg

DRUGS (2)
  1. MIRENA [Suspect]
     Indication: ENDOMETRIOSIS
     Dosage: 1 DEVICE 5 YEAR INTRA-UTERI
     Route: 015
     Dates: start: 20070611, end: 20070917
  2. MIRENA [Suspect]

REACTIONS (9)
  - ACNE [None]
  - FEELING ABNORMAL [None]
  - IUCD COMPLICATION [None]
  - MOOD SWINGS [None]
  - OVARIAN CYST [None]
  - PANIC ATTACK [None]
  - POLYMENORRHOEA [None]
  - VAGINAL HAEMORRHAGE [None]
  - WEIGHT INCREASED [None]
